FAERS Safety Report 8724412 (Version 3)
Quarter: 2012Q4

REPORT INFORMATION
  Report Type: 
  Country: US (occurrence: US)
  Receive Date: 20120815
  Receipt Date: 20121018
  Transmission Date: 20130627
  Serious: No
  Sender: FDA-Public Use
  Company Number: US-PFIZER INC-2012198241

PATIENT
  Sex: Female

DRUGS (2)
  1. LYRICA [Suspect]
     Indication: FIBROMYALGIA
     Dosage: 50 mg, 2x/day
     Route: 048
     Dates: start: 20120728, end: 201209
  2. LYRICA [Interacting]
     Indication: PAIN

REACTIONS (4)
  - Muscle twitching [Unknown]
  - Drug ineffective [Unknown]
  - Potentiating drug interaction [Unknown]
  - Pain [Unknown]
